FAERS Safety Report 9080977 (Version 1)
Quarter: 2013Q1

REPORT INFORMATION
  Report Type: Report from Study
  Country: US (occurrence: US)
  Receive Date: 20130130
  Receipt Date: 20130130
  Transmission Date: 20140127
  Serious: No
  Sender: FDA-Public Use
  Company Number: US-ABBOTT-12P-163-0981325-00

PATIENT
  Age: 27 Year
  Sex: Female

DRUGS (4)
  1. HUMIRA [Suspect]
     Indication: JUVENILE IDIOPATHIC ARTHRITIS
  2. AVIANE [Concomitant]
     Indication: DYSMENORRHOEA
     Dosage: DAILY
  3. DERMA-SMOOTH [Concomitant]
     Indication: PSORIASIS
     Dosage: AS NEEDED
  4. DIPROLENE [Concomitant]
     Indication: PSORIASIS
     Dosage: AS NEEDED

REACTIONS (1)
  - Abdominal pain upper [Recovering/Resolving]
